FAERS Safety Report 4293280-7 (Version None)
Quarter: 2004Q1

REPORT INFORMATION
  Report Type: 
  Country: None (occurrence: None)
  Receive Date: 20040210
  Receipt Date: 20040210
  Transmission Date: 20041129
  Serious: Yes (Hospitalization)
  Sender: FDA-Public Use
  Company Number: None

PATIENT
  Age: 64 Year
  Sex: Male
  Weight: 88 kg

DRUGS (8)
  1. FENTANYL [Suspect]
     Indication: NEOPLASM RECURRENCE
     Dosage: 150 MCG TD Q 3 DAYS
     Route: 062
     Dates: start: 20031201
  2. FENTANYL [Suspect]
     Indication: TONGUE NEOPLASM MALIGNANT STAGE UNSPECIFIED
     Dosage: 150 MCG TD Q 3 DAYS
     Route: 062
     Dates: start: 20031201
  3. OXYCODONE AND ACETAMINOPHEN [Suspect]
     Indication: NEOPLASM RECURRENCE
     Dosage: 10 ML VIA G-TUBE Q4-6 HR PRN
     Dates: start: 20021201, end: 20030101
  4. OXYCODONE AND ACETAMINOPHEN [Suspect]
     Indication: TONGUE NEOPLASM MALIGNANT STAGE UNSPECIFIED
     Dosage: 10 ML VIA G-TUBE Q4-6 HR PRN
     Dates: start: 20021201, end: 20030101
  5. OXYCODONE AND ACETAMINOPHEN [Suspect]
     Indication: NEOPLASM RECURRENCE
     Dosage: 10 ML VIA G-TUBE Q4-6 HR PRN
     Dates: start: 20030901, end: 20031001
  6. OXYCODONE AND ACETAMINOPHEN [Suspect]
     Indication: TONGUE NEOPLASM MALIGNANT STAGE UNSPECIFIED
     Dosage: 10 ML VIA G-TUBE Q4-6 HR PRN
     Dates: start: 20030901, end: 20031001
  7. OXYCODONE AND ACETAMINOPHEN [Suspect]
     Indication: NEOPLASM RECURRENCE
     Dosage: 10 ML VIA G-TUBE Q4-6 HR PRN
     Dates: start: 20031201
  8. OXYCODONE AND ACETAMINOPHEN [Suspect]
     Indication: TONGUE NEOPLASM MALIGNANT STAGE UNSPECIFIED
     Dosage: 10 ML VIA G-TUBE Q4-6 HR PRN
     Dates: start: 20031201

REACTIONS (3)
  - COMA [None]
  - MEDICATION ERROR [None]
  - TROPONIN INCREASED [None]
